FAERS Safety Report 8044858-6 (Version None)
Quarter: 2012Q1

REPORT INFORMATION
  Report Type: 
  Country: None (occurrence: None)
  Receive Date: 20120113
  Receipt Date: 20120106
  Transmission Date: 20120608
  Serious: Yes (Death, Hospitalization)
  Sender: FDA-Public Use
  Company Number: US-ROCHE-1028314

PATIENT
  Sex: Male
  Weight: 84.4 kg

DRUGS (15)
  1. MABTHERA [Suspect]
     Indication: CHRONIC LYMPHOCYTIC LEUKAEMIA
     Route: 042
     Dates: end: 20110831
  2. BACTRIM [Concomitant]
  3. COLACE [Concomitant]
  4. SOLU-MEDROL [Concomitant]
  5. GLUCAGON [Concomitant]
  6. MORPHINE SULFATE [Concomitant]
  7. ATENOLOL [Concomitant]
  8. HUMALOG [Concomitant]
  9. CAL-101 (PI3K DELTA INHIBITOR) [Suspect]
     Indication: CHRONIC LYMPHOCYTIC LEUKAEMIA
     Dates: start: 20110713, end: 20110921
  10. IRON SULFATETHIAMIN COMPOUND TAB [Concomitant]
  11. ZOSYN [Concomitant]
  12. AMBIEN [Concomitant]
  13. METFORMIN HCL [Concomitant]
  14. PREDNISONE [Concomitant]
  15. VANCOMYCIN [Concomitant]

REACTIONS (1)
  - HYPOXIA [None]
